FAERS Safety Report 19592269 (Version 1)
Quarter: 2021Q3

REPORT INFORMATION
  Report Type: Spontaneous
  Country: US (occurrence: US)
  Receive Date: 20210722
  Receipt Date: 20210722
  Transmission Date: 20211014
  Serious: No
  Sender: FDA-Public Use
  Company Number: US-JNJFOC-20210734102

PATIENT
  Sex: Female

DRUGS (4)
  1. RISPERDAL CONSTA [Suspect]
     Active Substance: RISPERIDONE
     Indication: SCHIZOPHRENIA
     Dosage: START DATE FOR THE RISPERDAL CONSTA WAS ABOUT 2 YEARS AGO
     Route: 030
  2. RISPERDAL CONSTA [Suspect]
     Active Substance: RISPERIDONE
  3. RISPERDAL CONSTA [Suspect]
     Active Substance: RISPERIDONE
  4. RISPERDAL CONSTA [Suspect]
     Active Substance: RISPERIDONE

REACTIONS (1)
  - Product dose omission issue [Unknown]

NARRATIVE: CASE EVENT DATE: 20210707
